FAERS Safety Report 12195337 (Version 1)
Quarter: 2016Q1

REPORT INFORMATION
  Report Type: Report from Study
  Country: DE (occurrence: IL)
  Receive Date: 20160321
  Receipt Date: 20160321
  Transmission Date: 20160526
  Serious: Yes (Death, Hospitalization, Other)
  Sender: FDA-Public Use
  Company Number: DE-ACTELION-A-US2016-133190

PATIENT
  Age: 69 Year
  Sex: Female

DRUGS (1)
  1. VENTAVIS [Suspect]
     Active Substance: ILOPROST
     Indication: PULMONARY HYPERTENSION
     Dosage: 2.5 MCG, 6/D
     Route: 055
     Dates: start: 20150917

REACTIONS (8)
  - Product use issue [Not Recovered/Not Resolved]
  - Pulmonary function test decreased [Unknown]
  - Skin discolouration [Not Recovered/Not Resolved]
  - Loss of consciousness [Unknown]
  - Death [Fatal]
  - Cyanosis [Unknown]
  - Dyspnoea [Recovering/Resolving]
  - Pulmonary hypertension [Unknown]

NARRATIVE: CASE EVENT DATE: 2015
